FAERS Safety Report 24223462 (Version 2)
Quarter: 2024Q3

REPORT INFORMATION
  Report Type: Spontaneous
  Country: US (occurrence: US)
  Receive Date: 20240819
  Receipt Date: 20240827
  Transmission Date: 20241017
  Serious: No
  Sender: PFIZER
  Company Number: US-PFIZER INC-202400235958

PATIENT
  Age: 72 Year
  Sex: Female

DRUGS (4)
  1. MEKTOVI [Suspect]
     Active Substance: BINIMETINIB
     Dosage: 15MG, 2 TABLETS TWICE A DAY
  2. MEKTOVI [Suspect]
     Active Substance: BINIMETINIB
     Dosage: HALF A DOSAGE
  3. BRAFTOVI [Suspect]
     Active Substance: ENCORAFENIB
     Dosage: 75MG, 3 CAPSULES DAILY
  4. BRAFTOVI [Suspect]
     Active Substance: ENCORAFENIB
     Dosage: HALF A DOSAGE

REACTIONS (2)
  - Illness [Unknown]
  - Off label use [Unknown]
